FAERS Safety Report 24832117 (Version 3)
Quarter: 2025Q1

REPORT INFORMATION
  Report Type: Spontaneous
  Country: US (occurrence: US)
  Receive Date: 20250110
  Receipt Date: 20250203
  Transmission Date: 20250409
  Serious: Yes (Other)
  Sender: NOVARTIS
  Company Number: US-002147023-NVSC2025US002517

PATIENT
  Sex: Female

DRUGS (1)
  1. LEQVIO [Suspect]
     Active Substance: INCLISIRAN SODIUM
     Indication: Low density lipoprotein increased
     Route: 058
     Dates: start: 20230723

REACTIONS (4)
  - Thoracic vertebral fracture [Recovered/Resolved with Sequelae]
  - Osteoporosis [Unknown]
  - Osteopenia [Unknown]
  - Fractured sacrum [Unknown]
